FAERS Safety Report 4313926-4 (Version None)
Quarter: 2004Q1

REPORT INFORMATION
  Report Type: 
  Country: None (occurrence: None)
  Receive Date: 20040305
  Receipt Date: 20040224
  Transmission Date: 20041129
  Serious: Yes (Hospitalization)
  Sender: FDA-Public Use
  Company Number: 04P-144-0251638-00

PATIENT
  Age: 36 Year
  Sex: Male

DRUGS (5)
  1. KALETRA [Suspect]
     Indication: HIV INFECTION
     Dosage: 3 CAPSULE, 2 IN 1 D, ORAL
     Route: 048
     Dates: start: 20040120, end: 20040220
  2. AMPHOTERICIN B [Concomitant]
  3. AZITHROMYCIN [Concomitant]
  4. ETHAMBUTOL HCL [Concomitant]
  5. CLOTRIMOXAZOL [Concomitant]

REACTIONS (5)
  - BONE MARROW DISORDER [None]
  - ENTEROCOLITIS INFECTIOUS [None]
  - IMMUNODEFICIENCY [None]
  - MYCOBACTERIAL INFECTION [None]
  - VISCERAL LEISHMANIASIS [None]
